FAERS Safety Report 4490735-7 (Version None)
Quarter: 2004Q4

REPORT INFORMATION
  Report Type: 
  Country: None (occurrence: None)
  Receive Date: 20041029
  Receipt Date: 20041004
  Transmission Date: 20050328
  Serious: Yes (Hospitalization)
  Sender: FDA-Public Use
  Company Number: CIO04018402

PATIENT
  Age: 51 Year
  Sex: Female
  Weight: 79.4 kg

DRUGS (2)
  1. METAMUCIL SUGAR-FREE TEXTURE/FLAVOR UNKNOWN(PSYLLIUM HYDROPHILIC MUCIL [Suspect]
     Dosage: 1 TBSP, 1 /DAY FOR 724 DAYS, ORAL
     Route: 048
     Dates: start: 20020810, end: 20040806
  2. XANAX [Concomitant]

REACTIONS (13)
  - AGITATION [None]
  - ANGER [None]
  - CHILLS [None]
  - DRUG INEFFECTIVE [None]
  - EMOTIONAL DISTRESS [None]
  - FEELING COLD [None]
  - HEART RATE INCREASED [None]
  - HYPOAESTHESIA [None]
  - ILL-DEFINED DISORDER [None]
  - OVERDOSE [None]
  - PERIPHERAL COLDNESS [None]
  - SKIN IRRITATION [None]
  - TACHYCARDIA [None]
